FAERS Safety Report 12373864 (Version 1)
Quarter: 2016Q2

REPORT INFORMATION
  Report Type: Report from Study
  Country: JP (occurrence: JP)
  Receive Date: 20160517
  Receipt Date: 20160517
  Transmission Date: 20160815
  Serious: Yes (Other)
  Sender: FDA-Public Use
  Company Number: JP-ROCHE-1651387

PATIENT

DRUGS (4)
  1. BEVACIZUMAB [Suspect]
     Active Substance: BEVACIZUMAB
     Indication: NON-SMALL CELL LUNG CANCER
     Dosage: ON DAY 1
     Route: 042
  2. CARBOPLATIN. [Suspect]
     Active Substance: CARBOPLATIN
     Indication: NON-SMALL CELL LUNG CANCER
     Dosage: (AUC 6) ON DAY 1, FOR 3 TO 6 CYCLES
     Route: 042
  3. BEVACIZUMAB [Suspect]
     Active Substance: BEVACIZUMAB
     Dosage: MAINTENANCE
     Route: 042
  4. PACLITAXEL. [Suspect]
     Active Substance: PACLITAXEL
     Indication: NON-SMALL CELL LUNG CANCER
     Dosage: ON DAYS 1, 8, AND 15 (I.E. WEEKLY FOR 3 OF 4 WEEKS) INTRAVENOUSLY EVERY 4 WEEKS, FOR 3 TO 6 CYCLES
     Route: 042

REACTIONS (9)
  - Hypertension [Unknown]
  - Neuropathy peripheral [Unknown]
  - Interstitial lung disease [Unknown]
  - Anaemia [Unknown]
  - Proteinuria [Unknown]
  - Neutropenia [Unknown]
  - Thrombocytopenia [Unknown]
  - Small intestinal perforation [Unknown]
  - Gastrointestinal haemorrhage [Unknown]
